FAERS Safety Report 19076632 (Version 1)
Quarter: 2021Q1

REPORT INFORMATION
  Report Type: Spontaneous
  Country: US (occurrence: US)
  Receive Date: 20210331
  Receipt Date: 20210331
  Transmission Date: 20210420
  Serious: No
  Sender: FDA-Public Use
  Company Number: US-ORGANON-O2103USA000880

PATIENT
  Age: 17 Year
  Sex: Female
  Weight: 151.02 kg

DRUGS (1)
  1. NEXPLANON [Suspect]
     Active Substance: ETONOGESTREL
     Dosage: 68 MILLIGRAM, EVERY 3 YEARS, LEFT UPPER ARM
     Route: 059
     Dates: start: 202008, end: 20210225

REACTIONS (6)
  - Device kink [Unknown]
  - Complication of device removal [Recovered/Resolved]
  - Complication of device insertion [Recovered/Resolved]
  - Feeling abnormal [Unknown]
  - Implant site fibrosis [Unknown]
  - Procedural pain [Unknown]

NARRATIVE: CASE EVENT DATE: 202008
